FAERS Safety Report 8807048 (Version 1)
Quarter: 2012Q4

REPORT INFORMATION
  Report Type: 
  Country: AR (occurrence: AR)
  Receive Date: 20120925
  Receipt Date: 20120925
  Transmission Date: 20130627
  Serious: Yes (Other)
  Sender: FDA-Public Use
  Company Number: PHHY2012AR082526

PATIENT
  Sex: Male

DRUGS (1)
  1. ONBREZ [Suspect]
     Indication: BRONCHITIS

REACTIONS (1)
  - Accident [Unknown]
